FAERS Safety Report 4679151-2 (Version None)
Quarter: 2005Q2

REPORT INFORMATION
  Report Type: 
  Country: None (occurrence: None)
  Receive Date: 20050527
  Receipt Date: 20050303
  Transmission Date: 20051028
  Serious: No
  Sender: FDA-Public Use
  Company Number: S05-USA-01261-01

PATIENT
  Age: 43 Year
  Sex: Female

DRUGS (2)
  1. CAMPRAL [Suspect]
     Indication: ABSTAINS FROM ALCOHOL
     Dosage: 666 MG TID PO
     Route: 048
     Dates: start: 20050103, end: 20050202
  2. CAMPRAL [Suspect]
     Indication: ABSTAINS FROM ALCOHOL
     Dosage: 333 MG BID PO
     Route: 048
     Dates: start: 20050203

REACTIONS (2)
  - DIARRHOEA [None]
  - FLATULENCE [None]
